FAERS Safety Report 5924884-0 (Version None)
Quarter: 2008Q4

REPORT INFORMATION
  Report Type: 
  Country: None (occurrence: None)
  Receive Date: 20081021
  Receipt Date: 20081013
  Transmission Date: 20090506
  Serious: Yes (Hospitalization, Other)
  Sender: FDA-Public Use
  Company Number: US-JNJFOC-20081003620

PATIENT
  Sex: Female
  Weight: 54.43 kg

DRUGS (1)
  1. RISPERDAL [Suspect]
     Indication: DEMENTIA
     Route: 065

REACTIONS (2)
  - PULMONARY OEDEMA [None]
  - URINARY TRACT DISORDER [None]
